FAERS Safety Report 15061074 (Version 1)
Quarter: 2018Q2

REPORT INFORMATION
  Report Type: Spontaneous
  Country: US (occurrence: US)
  Receive Date: 20180625
  Receipt Date: 20180625
  Transmission Date: 20180711
  Serious: No
  Sender: FDA-Public Use
  Company Number: US-ROCHE-2048253

PATIENT
  Sex: Female

DRUGS (1)
  1. XELODA [Suspect]
     Active Substance: CAPECITABINE
     Indication: BREAST CANCER FEMALE
     Dosage: FOR 14DAYS, TAKE 7 DAYS OFF
     Route: 048
     Dates: start: 20171221

REACTIONS (2)
  - Nausea [Unknown]
  - Decreased appetite [Unknown]
